FAERS Safety Report 9296674 (Version 2)
Quarter: 2013Q2

REPORT INFORMATION
  Report Type: Spontaneous
  Country: US (occurrence: US)
  Receive Date: 20130517
  Receipt Date: 20130627
  Transmission Date: 20140414
  Serious: Yes (Other)
  Sender: FDA-Public Use
  Company Number: US-PFIZER INC-2013151238

PATIENT
  Age: 74 Year
  Sex: Female
  Weight: 58.96 kg

DRUGS (5)
  1. LYRICA [Suspect]
     Indication: FIBROMYALGIA
     Dosage: 75 MG, 2X/DAY
     Route: 048
     Dates: start: 1998
  2. PRILOSEC [Concomitant]
     Dosage: UNK
  3. CYMBALTA [Concomitant]
     Indication: PAIN
     Dosage: UNK
  4. COUMADINE [Concomitant]
     Indication: THROMBOSIS
     Dosage: UNK
  5. ABILIFY [Concomitant]
     Indication: PLASMA CELL MYELOMA
     Dosage: UNK

REACTIONS (1)
  - Drug level increased [Unknown]
